FAERS Safety Report 25522994 (Version 4)
Quarter: 2025Q3

REPORT INFORMATION
  Report Type: Spontaneous
  Country: US (occurrence: US)
  Receive Date: 20250707
  Receipt Date: 20250821
  Transmission Date: 20251021
  Serious: No
  Sender: ALEXION PHARMACEUTICALS
  Company Number: US-AstraZeneca-CH-00898035AP

PATIENT
  Sex: Female

DRUGS (4)
  1. TEZSPIRE [Suspect]
     Active Substance: TEZEPELUMAB-EKKO
     Route: 065
  2. TEZSPIRE [Suspect]
     Active Substance: TEZEPELUMAB-EKKO
  3. COUMADIN [Concomitant]
     Active Substance: WARFARIN SODIUM
     Route: 065
  4. ZEPBOUND [Concomitant]
     Active Substance: TIRZEPATIDE
     Route: 065

REACTIONS (15)
  - Drug delivery system issue [Unknown]
  - Dyspnoea [Unknown]
  - Injection site pain [Unknown]
  - Dysphonia [Unknown]
  - Needle issue [Unknown]
  - Device leakage [Unknown]
  - Device use issue [Unknown]
  - Injury associated with device [Unknown]
  - Device issue [Unknown]
  - Device defective [Unknown]
  - Frustration tolerance decreased [Unknown]
  - Burning sensation [Unknown]
  - Dyspnoea [Unknown]
  - Injection site pain [Unknown]
  - Drug ineffective [Unknown]
